FAERS Safety Report 9312145 (Version 1)
Quarter: 2013Q1

REPORT INFORMATION
  Report Type: Spontaneous
  Country: US (occurrence: None)
  Receive Date: 20130211
  Receipt Date: 20130211
  Transmission Date: 20140127
  Serious: No
  Sender: FDA-Public Use
  Company Number: 2012-00198

PATIENT
  Age: 70 Year
  Sex: Male

DRUGS (1)
  1. ZICAM EXTREME CONGESTION RELIEF [Suspect]
     Indication: SINUS DISORDER
     Dosage: INSERTED NASALLY TWICE WEEKLY
     Route: 045
     Dates: start: 201206

REACTIONS (3)
  - Sinus disorder [None]
  - Condition aggravated [None]
  - Anosmia [None]
